FAERS Safety Report 14607107 (Version 8)
Quarter: 2018Q4

REPORT INFORMATION
  Report Type: Report from Study
  Country: GB (occurrence: GB)
  Receive Date: 20180307
  Receipt Date: 20181017
  Transmission Date: 20190204
  Serious: Yes (Life-Threatening, Hospitalization)
  Sender: FDA-Public Use
  Company Number: GB-CELGENEUS-GBR-20180110932

PATIENT
  Age: 75 Year
  Sex: Female
  Weight: 45 kg

DRUGS (11)
  1. FOLINIC ACID [Suspect]
     Active Substance: LEUCOVORIN
     Indication: PANCREATIC CARCINOMA METASTATIC
     Dosage: 350 MILLIGRAM
     Route: 041
     Dates: start: 20180122, end: 20180208
  2. OXALIPLATIN. [Suspect]
     Active Substance: OXALIPLATIN
     Dosage: 97.5 MILLIGRAM
     Route: 041
     Dates: start: 20180122, end: 20180208
  3. INSULIN ASPART BIPHASIC [Concomitant]
     Indication: DIABETES MELLITUS
     Dosage: 100 UNITS/ML - 3ML PRE FILLED DEVISE USED AS DIRECTED, 30/70
     Route: 058
  4. OXALIPLATIN. [Suspect]
     Active Substance: OXALIPLATIN
     Indication: PANCREATIC CARCINOMA METASTATIC
     Dosage: 120 MILLIGRAM
     Route: 041
     Dates: start: 20180122, end: 20180122
  5. 5FU [Suspect]
     Active Substance: FLUOROURACIL
     Indication: PANCREATIC CARCINOMA METASTATIC
     Dosage: 3450 MILLIGRAM
     Route: 041
     Dates: start: 20180122, end: 20180122
  6. 5FU [Suspect]
     Active Substance: FLUOROURACIL
     Dosage: 2750 MILLIGRAM
     Route: 041
     Dates: start: 20180122, end: 20180208
  7. COCODAMOL [Concomitant]
     Active Substance: ACETAMINOPHEN\CODEINE PHOSPHATE
     Indication: ANALGESIC THERAPY
     Dosage: 30/500MG
     Route: 048
  8. ABRAXANE [Suspect]
     Active Substance: PACLITAXEL
     Indication: PANCREATIC CARCINOMA METASTATIC
     Dosage: 215 MILLIGRAM
     Route: 041
     Dates: start: 20180122, end: 20180122
  9. ABRAXANE [Suspect]
     Active Substance: PACLITAXEL
     Dosage: 170 MILLIGRAM
     Route: 041
     Dates: start: 20180122, end: 20180208
  10. DEXAMETHASONE. [Concomitant]
     Active Substance: DEXAMETHASONE
     Indication: PROPHYLACTIC CHEMOTHERAPY
     Dosage: 8 MILLIGRAM
     Route: 048
     Dates: start: 20180123, end: 20180126
  11. FILGRASTIM [Concomitant]
     Active Substance: FILGRASTIM
     Indication: PROPHYLAXIS
     Dosage: 30MU/0.5ML
     Route: 058

REACTIONS (5)
  - Sepsis [Recovered/Resolved]
  - Diarrhoea [Recovered/Resolved]
  - Anal incontinence [Not Recovered/Not Resolved]
  - Hepatic infection [Recovered/Resolved with Sequelae]
  - Disorientation [Not Recovered/Not Resolved]

NARRATIVE: CASE EVENT DATE: 20180126
